FAERS Safety Report 11554867 (Version 1)
Quarter: 2015Q3

REPORT INFORMATION
  Report Type: Spontaneous
  Country: US (occurrence: US)
  Receive Date: 20150925
  Receipt Date: 20150925
  Transmission Date: 20151125
  Serious: Yes (Other)
  Sender: FDA-Public Use
  Company Number: US-JNJFOC-20150913175

PATIENT
  Age: 94 Year
  Sex: Female
  Weight: 63.5 kg

DRUGS (4)
  1. BABY ASPIRIN [Suspect]
     Active Substance: ASPIRIN
     Indication: CARDIAC DISORDER
     Dosage: EVERY OTHER DAY
     Route: 065
     Dates: start: 201508
  2. PLAVIX [Suspect]
     Active Substance: CLOPIDOGREL BISULFATE
     Indication: ANTICOAGULANT THERAPY
     Dosage: COUPLE MONTHS
     Route: 065
     Dates: start: 201506
  3. METOPROLOL TARTRATE. [Suspect]
     Active Substance: METOPROLOL TARTRATE
     Indication: CARDIAC DISORDER
     Route: 065
     Dates: start: 2014
  4. TYLENOL EXTRA STRENGTH [Suspect]
     Active Substance: ACETAMINOPHEN
     Indication: PAIN IN EXTREMITY
     Route: 048

REACTIONS (2)
  - Loss of consciousness [Recovered/Resolved]
  - Underdose [Recovered/Resolved]
